FAERS Safety Report 8832935 (Version 2)
Quarter: 2013Q1

REPORT INFORMATION
  Report Type: Spontaneous
  Country: US (occurrence: US)
  Receive Date: 20121010
  Receipt Date: 20130308
  Transmission Date: 20140127
  Serious: Yes (Hospitalization)
  Sender: FDA-Public Use
  Company Number: PHHY2012US087354

PATIENT
  Age: 15 Year
  Sex: Male

DRUGS (2)
  1. PREDNISONE [Suspect]
     Indication: SINUSITIS
  2. AUGMENTIN [Concomitant]

REACTIONS (6)
  - Tumour lysis syndrome [Unknown]
  - VIIth nerve paralysis [Unknown]
  - T-cell type acute leukaemia [Unknown]
  - Malaise [Recovered/Resolved]
  - Erythema [Recovered/Resolved]
  - Tachypnoea [Recovered/Resolved]
